FAERS Safety Report 15275130 (Version 2)
Quarter: 2018Q4

REPORT INFORMATION
  Report Type: Spontaneous
  Country: US (occurrence: US)
  Receive Date: 20180814
  Receipt Date: 20181002
  Transmission Date: 20190204
  Serious: No
  Sender: FDA-Public Use
  Company Number: US-PFIZER INC-2018323262

PATIENT
  Sex: Female

DRUGS (4)
  1. LYRICA [Suspect]
     Active Substance: PREGABALIN
     Indication: FIBROMYALGIA
     Dosage: 3 PILLS, UNK
  2. LYRICA [Suspect]
     Active Substance: PREGABALIN
     Dosage: 275 MG, 2X/DAY
  3. LYRICA [Suspect]
     Active Substance: PREGABALIN
     Dosage: 150 MG BEFORE SLEEPING
  4. LYRICA [Suspect]
     Active Substance: PREGABALIN
     Dosage: 1 PILL, UNK (TAKING 1 PILL INSTEAD OF 3 PILLS)

REACTIONS (6)
  - Memory impairment [Unknown]
  - Pain in extremity [Unknown]
  - Fatigue [Unknown]
  - Withdrawal syndrome [Unknown]
  - Intentional product use issue [Unknown]
  - Somnolence [Unknown]
